FAERS Safety Report 25418039 (Version 2)
Quarter: 2025Q2

REPORT INFORMATION
  Report Type: Spontaneous
  Country: ES (occurrence: ES)
  Receive Date: 20250610
  Receipt Date: 20250630
  Transmission Date: 20250716
  Serious: Yes (Life-Threatening, Hospitalization, Other)
  Sender: MYLAN
  Company Number: None

PATIENT
  Age: 24 Year
  Sex: Female

DRUGS (16)
  1. ACETAMINOPHEN [Interacting]
     Active Substance: ACETAMINOPHEN
     Indication: Product used for unknown indication
     Dates: start: 20250424, end: 20250425
  2. ACETAMINOPHEN [Interacting]
     Active Substance: ACETAMINOPHEN
     Route: 048
     Dates: start: 20250424, end: 20250425
  3. ACETAMINOPHEN [Interacting]
     Active Substance: ACETAMINOPHEN
     Route: 048
     Dates: start: 20250424, end: 20250425
  4. ACETAMINOPHEN [Interacting]
     Active Substance: ACETAMINOPHEN
     Dates: start: 20250424, end: 20250425
  5. IBUPROFEN [Interacting]
     Active Substance: IBUPROFEN
     Indication: Product used for unknown indication
     Dates: start: 20250425, end: 20250425
  6. IBUPROFEN [Interacting]
     Active Substance: IBUPROFEN
     Route: 048
     Dates: start: 20250425, end: 20250425
  7. IBUPROFEN [Interacting]
     Active Substance: IBUPROFEN
     Route: 048
     Dates: start: 20250425, end: 20250425
  8. IBUPROFEN [Interacting]
     Active Substance: IBUPROFEN
     Dates: start: 20250425, end: 20250425
  9. METAMIZOLE MAGNESIUM [Interacting]
     Active Substance: METAMIZOLE MAGNESIUM
     Indication: Product used for unknown indication
     Dates: start: 20250425, end: 20250425
  10. METAMIZOLE MAGNESIUM [Interacting]
     Active Substance: METAMIZOLE MAGNESIUM
     Route: 048
     Dates: start: 20250425, end: 20250425
  11. METAMIZOLE MAGNESIUM [Interacting]
     Active Substance: METAMIZOLE MAGNESIUM
     Route: 048
     Dates: start: 20250425, end: 20250425
  12. METAMIZOLE MAGNESIUM [Interacting]
     Active Substance: METAMIZOLE MAGNESIUM
     Dates: start: 20250425, end: 20250425
  13. NAPROXEN [Interacting]
     Active Substance: NAPROXEN
     Indication: Product used for unknown indication
     Dates: start: 20250425, end: 20250425
  14. NAPROXEN [Interacting]
     Active Substance: NAPROXEN
     Route: 048
     Dates: start: 20250425, end: 20250425
  15. NAPROXEN [Interacting]
     Active Substance: NAPROXEN
     Route: 048
     Dates: start: 20250425, end: 20250425
  16. NAPROXEN [Interacting]
     Active Substance: NAPROXEN
     Dates: start: 20250425, end: 20250425

REACTIONS (5)
  - Hepatocellular injury [Recovering/Resolving]
  - Coagulopathy [Recovered/Resolved]
  - Intentional overdose [Recovered/Resolved]
  - Suicide attempt [Unknown]
  - Drug interaction [Unknown]

NARRATIVE: CASE EVENT DATE: 20250424
